FAERS Safety Report 7507468-2 (Version None)
Quarter: 2011Q2

REPORT INFORMATION
  Report Type: 
  Country: None (occurrence: None)
  Receive Date: 20110526
  Receipt Date: 20110516
  Transmission Date: 20111010
  Serious: Yes (Hospitalization, Other)
  Sender: FDA-Public Use
  Company Number: US-MERCK-1010USA01916

PATIENT
  Age: 71 Year
  Sex: Female
  Weight: 89 kg

DRUGS (8)
  1. FOSAMAX [Suspect]
     Indication: OSTEOPOROSIS PROPHYLAXIS
     Route: 048
     Dates: start: 20030101, end: 20061201
  2. FOSAMAX [Suspect]
     Route: 048
     Dates: start: 20040101
  3. FOSAMAX PLUS D [Suspect]
     Route: 048
     Dates: start: 20081001
  4. VITAMIN D (UNSPECIFIED) [Concomitant]
     Route: 065
     Dates: start: 20000101
  5. FOSAMAX [Suspect]
     Route: 048
     Dates: start: 20010501, end: 20021007
  6. FOSAMAX [Suspect]
     Route: 048
     Dates: start: 20021001
  7. FOSAMAX PLUS D [Suspect]
     Indication: OSTEOPOROSIS PROPHYLAXIS
     Route: 048
     Dates: start: 20070101, end: 20080801
  8. CALCIUM (UNSPECIFIED) [Concomitant]
     Route: 065
     Dates: start: 20000101

REACTIONS (38)
  - DEAFNESS [None]
  - ANKLE FRACTURE [None]
  - TOOTH EXTRACTION [None]
  - ONYCHOMYCOSIS [None]
  - HIATUS HERNIA [None]
  - PAIN [None]
  - LOW TURNOVER OSTEOPATHY [None]
  - SPONDYLOLISTHESIS [None]
  - HAEMATOMA [None]
  - RECTAL HAEMORRHAGE [None]
  - CHEST PAIN [None]
  - FALL [None]
  - NEUROENDOCRINE CARCINOMA OF THE SKIN [None]
  - VERTIGO POSITIONAL [None]
  - DIVERTICULUM [None]
  - RETINAL ARTERY OCCLUSION [None]
  - HEMIPARESIS [None]
  - HEAD INJURY [None]
  - VOMITING [None]
  - JOINT SPRAIN [None]
  - DEPRESSION [None]
  - CARDIOMEGALY [None]
  - FEMUR FRACTURE [None]
  - BLINDNESS UNILATERAL [None]
  - CEREBROVASCULAR DISORDER [None]
  - CATARACT NUCLEAR [None]
  - AORTIC ARTERIOSCLEROSIS [None]
  - DIABETIC NEUROPATHY [None]
  - INCORRECT DOSE ADMINISTERED [None]
  - PERIPHERAL VASCULAR DISORDER [None]
  - OSTEOPENIA [None]
  - INGROWING NAIL [None]
  - HAEMATURIA [None]
  - CEREBROVASCULAR ACCIDENT [None]
  - FULL BLOOD COUNT DECREASED [None]
  - URINARY TRACT INFECTION [None]
  - LUMBAR SPINAL STENOSIS [None]
  - CAROTID ARTERY STENOSIS [None]
